FAERS Safety Report 16624071 (Version 1)
Quarter: 2019Q3

REPORT INFORMATION
  Report Type: Spontaneous
  Country: GB (occurrence: GB)
  Receive Date: 20190724
  Receipt Date: 20190724
  Transmission Date: 20191004
  Serious: Yes (Hospitalization)
  Sender: FDA-Public Use
  Company Number: GB-ACCORD-141037

PATIENT
  Age: 65 Year
  Sex: Female

DRUGS (16)
  1. TEICOPLANIN [Suspect]
     Active Substance: TEICOPLANIN
     Indication: PRODUCT USED FOR UNKNOWN INDICATION
  2. TERIPARATIDE/TERIPARATIDE ACETATE [Concomitant]
     Dates: end: 20181126
  3. CODEINE [Suspect]
     Active Substance: CODEINE
     Indication: PRODUCT USED FOR UNKNOWN INDICATION
  4. BRALTUS [Concomitant]
     Active Substance: TIOTROPIUM BROMIDE
     Dosage: WITH ZONDA INHALER
     Route: 055
  5. AMITRIPTYLINE [Concomitant]
     Active Substance: AMITRIPTYLINE
     Dosage: NIGHT
  6. BETAHISTINE [Concomitant]
     Active Substance: BETAHISTINE
  7. LEVOTHYROXINE. [Concomitant]
     Active Substance: LEVOTHYROXINE
     Dosage: 50MCG IN MORNING. TAKE AT LEAST 30 MINUTES BEFORE BREAKFAST, CAFFEINE OR OTHER MEDICATION.
  8. PREGABALIN. [Concomitant]
     Active Substance: PREGABALIN
  9. ONDANSETRON [Suspect]
     Active Substance: ONDANSETRON
     Indication: PRODUCT USED FOR UNKNOWN INDICATION
     Route: 042
  10. ALFACALCIDOL [Concomitant]
     Active Substance: ALFACALCIDOL
  11. FOLIC ACID. [Concomitant]
     Active Substance: FOLIC ACID
  12. CALCICHEW D3 [Concomitant]
     Active Substance: CALCIUM\CHOLECALCIFEROL
     Dosage: SWITCHED AS PER ENDO
  13. WAVE PHARMA DULOXETINE [Concomitant]
  14. DIAZEPAM. [Concomitant]
     Active Substance: DIAZEPAM
  15. THIAMINE. [Concomitant]
     Active Substance: THIAMINE
     Dosage: PATIENT SAYS SHE DOESN^T TAKE THESE BUT THEY ARE STILL PRESCRIBED.
  16. CYCLIZINE [Suspect]
     Active Substance: CYCLIZINE
     Indication: PRODUCT USED FOR UNKNOWN INDICATION
     Route: 042

REACTIONS (2)
  - Hypersensitivity [Unknown]
  - Red man syndrome [Unknown]
